FAERS Safety Report 5948860-7 (Version None)
Quarter: 2008Q4

REPORT INFORMATION
  Report Type: 
  Country: None (occurrence: None)
  Receive Date: 20081111
  Receipt Date: 20071107
  Transmission Date: 20090506
  Serious: No
  Sender: FDA-Public Use
  Company Number: US-BRISTOL-MYERS SQUIBB COMPANY-13947502

PATIENT
  Age: 67 Year
  Sex: Male

DRUGS (3)
  1. SUSTIVA [Suspect]
     Route: 048
     Dates: start: 20030901
  2. TRUVADA [Concomitant]
  3. TESTIM [Concomitant]

REACTIONS (1)
  - MEDICATION RESIDUE [None]
